FAERS Safety Report 6093776-1 (Version None)
Quarter: 2009Q1

REPORT INFORMATION
  Report Type: 
  Country: None (occurrence: None)
  Receive Date: 20090226
  Receipt Date: 20090216
  Transmission Date: 20090719
  Serious: Yes (Hospitalization)
  Sender: FDA-Public Use
  Company Number: US-KINGPHARMUSA00001-K200900152

PATIENT
  Age: 67 Year
  Sex: Female

DRUGS (16)
  1. ALTACE [Suspect]
     Indication: HYPERTENSION
     Dosage: 5 MG, QD
     Route: 048
     Dates: end: 20081019
  2. LASIX [Suspect]
     Indication: HYPERTENSION
     Dosage: 1 U, QD
     Route: 048
     Dates: start: 20081016, end: 20081017
  3. HYDROCHLOROTHIAZIDE [Suspect]
     Indication: HYPERTENSION
     Dosage: 12.5 MG, QD
     Route: 048
     Dates: end: 20081019
  4. ALDACTONE [Suspect]
     Indication: HYPERTENSION
     Dosage: 1 U, QD
     Route: 048
     Dates: start: 20081016, end: 20081020
  5. DIFFU K [Suspect]
     Indication: BLOOD POTASSIUM DECREASED
     Dosage: 2400 MG, QD
     Route: 048
     Dates: start: 20081016, end: 20081020
  6. NOROXIN [Suspect]
     Indication: URINARY TRACT INFECTION
     Dosage: 400 MG, QD
     Route: 048
     Dates: start: 20081015, end: 20081020
  7. COLCHICINE [Suspect]
     Indication: HYPERURICAEMIA
     Dosage: 0.5 MG, QD
     Route: 048
     Dates: start: 20081016, end: 20081020
  8. BISOPROLOL [Suspect]
     Indication: HYPERTENSION
     Dosage: 1 U, QD
     Route: 048
     Dates: end: 20081016
  9. MONOTILDIEM                        /00489701/ [Concomitant]
     Indication: PROPHYLAXIS
     Dosage: 200 MG, UNK
     Dates: start: 20081017
  10. PREVISCAN                          /00261401/ [Concomitant]
     Dosage: UNK
     Route: 048
  11. OMEPRAZOLE [Concomitant]
     Dosage: UNK
  12. TEMESTA                            /00273201/ [Concomitant]
     Dosage: UNK
  13. NOCTAMID [Concomitant]
     Dosage: UNK
  14. BONVIVA                            /01304701/ [Concomitant]
     Dosage: UNK
  15. SPIRIVA [Concomitant]
     Dosage: UNK
  16. SYMBICORT [Concomitant]
     Dosage: UNK

REACTIONS (9)
  - ANAEMIA [None]
  - ASCITES [None]
  - CYTOLYTIC HEPATITIS [None]
  - DRUG INTERACTION [None]
  - HEPATOMEGALY [None]
  - HYPERKALAEMIA [None]
  - OEDEMA [None]
  - PLEURAL EFFUSION [None]
  - RENAL FAILURE ACUTE [None]
